FAERS Safety Report 17980546 (Version 1)
Quarter: 2020Q3

REPORT INFORMATION
  Report Type: Spontaneous
  Country: IT (occurrence: IT)
  Receive Date: 20200704
  Receipt Date: 20200704
  Transmission Date: 20201103
  Serious: Yes (Other)
  Sender: FDA-Public Use
  Company Number: IT-AUROBINDO-AUR-APL-2009-01707

PATIENT
  Age: 25 Year
  Sex: Male

DRUGS (2)
  1. METFORMIN [Suspect]
     Active Substance: METFORMIN HYDROCHLORIDE
     Indication: HYPERINSULINAEMIA
     Dosage: 500 MILLIGRAM, 3 TIMES A DAY
     Route: 065
     Dates: start: 200806
  2. AMISULPRIDE [Interacting]
     Active Substance: AMISULPRIDE
     Indication: MENTAL DISORDER
     Dosage: 200 MILLIGRAM, ONCE A DAY
     Route: 065
     Dates: start: 2008

REACTIONS (8)
  - Aspartate aminotransferase increased [Unknown]
  - Alanine aminotransferase increased [Unknown]
  - Rhabdomyolysis [Unknown]
  - Muscular weakness [Unknown]
  - Aldolase increased [Unknown]
  - Drug interaction [Unknown]
  - Blood creatine phosphokinase increased [Recovered/Resolved]
  - Myoglobin blood increased [Unknown]
